FAERS Safety Report 7348093-6 (Version None)
Quarter: 2011Q1

REPORT INFORMATION
  Report Type: 
  Country: None (occurrence: None)
  Receive Date: 20110311
  Receipt Date: 20110308
  Transmission Date: 20110831
  Serious: Yes (Death, Hospitalization)
  Sender: FDA-Public Use
  Company Number: TW-CEPHALON-2011000402

PATIENT
  Sex: Male

DRUGS (5)
  1. NINCORT [Concomitant]
  2. BENDAMUSTINE HCL [Suspect]
     Indication: NON-HODGKIN'S LYMPHOMA
     Route: 042
     Dates: start: 20100703, end: 20101205
  3. TINTEN [Concomitant]
  4. DIFLUCAN [Concomitant]
  5. KALIMATE [Concomitant]

REACTIONS (6)
  - RESPIRATORY FAILURE [None]
  - PNEUMONIA [None]
  - HYPERGLYCAEMIA [None]
  - RENAL FAILURE [None]
  - HYPERGLYCAEMIC HYPEROSMOLAR NONKETOTIC SYNDROME [None]
  - KLEBSIELLA BACTERAEMIA [None]
